FAERS Safety Report 14749657 (Version 1)
Quarter: 2018Q2

REPORT INFORMATION
  Report Type: Spontaneous
  Country: DK (occurrence: DK)
  Receive Date: 20180411
  Receipt Date: 20180411
  Transmission Date: 20180711
  Serious: Yes (Death, Hospitalization)
  Sender: FDA-Public Use
  Company Number: DK-BAXTER-2018BAX010794

PATIENT
  Age: 69 Year
  Sex: Male

DRUGS (16)
  1. SENDOXAN [Suspect]
     Active Substance: CYCLOPHOSPHAMIDE
     Dosage: RECEIVED FOR SIX TIMES
     Route: 065
     Dates: end: 201008
  2. PREDNISOLONE. [Suspect]
     Active Substance: PREDNISOLONE
     Indication: B-CELL LYMPHOMA
     Dosage: RECEIVED SIX SERIES
     Route: 065
     Dates: start: 201102
  3. PREDNISOLONE. [Suspect]
     Active Substance: PREDNISOLONE
     Dosage: RECEIVED TWO TREATMENTS
     Route: 065
     Dates: start: 201001
  4. SENDOXAN [Suspect]
     Active Substance: CYCLOPHOSPHAMIDE
     Indication: B-CELL LYMPHOMA
     Dosage: RECEIVED TWO TREATMENTS
     Route: 065
     Dates: start: 201001
  5. RITUXIMAB. [Suspect]
     Active Substance: RITUXIMAB
     Indication: B-CELL LYMPHOMA
     Dosage: MAINTENANCE THERAPY EVERY THREE MONTHS
     Route: 065
  6. RITUXIMAB. [Suspect]
     Active Substance: RITUXIMAB
     Dosage: RECEIVED FOR SIX TIMES
     Route: 065
     Dates: end: 201008
  7. VINCRISTINE [Suspect]
     Active Substance: VINCRISTINE
     Dosage: RECEIVED SIX SERIES
     Route: 065
     Dates: start: 201102
  8. SENDOXAN [Suspect]
     Active Substance: CYCLOPHOSPHAMIDE
     Dosage: RECEIVED SIX SERIES
     Route: 065
     Dates: start: 201102
  9. FLUDARABINE [Suspect]
     Active Substance: FLUDARABINE PHOSPHATE
     Indication: PRODUCT USED FOR UNKNOWN INDICATION
     Route: 065
     Dates: end: 201008
  10. RITUXIMAB. [Suspect]
     Active Substance: RITUXIMAB
     Dosage: RECEIVED TWO TREATMENTS
     Route: 065
     Dates: start: 201001
  11. DOXORUBICIN [Suspect]
     Active Substance: DOXORUBICIN
     Indication: PRODUCT USED FOR UNKNOWN INDICATION
     Dosage: TREATED WITH SIX SERIES
     Route: 065
     Dates: start: 201102
  12. VINCRISTINE [Suspect]
     Active Substance: VINCRISTINE
     Indication: B-CELL LYMPHOMA
     Dosage: RECEIVED TWO TREATMENTS
     Route: 065
     Dates: start: 201001
  13. SENDOXAN [Suspect]
     Active Substance: CYCLOPHOSPHAMIDE
     Indication: B-CELL LYMPHOMA
     Route: 048
     Dates: start: 2004, end: 2009
  14. RITUXIMAB. [Suspect]
     Active Substance: RITUXIMAB
     Dosage: TREATED WITH SIX SERIES
     Route: 065
     Dates: start: 201102
  15. CHLORAMBUCIL [Suspect]
     Active Substance: CHLORAMBUCIL
     Indication: B-CELL LYMPHOMA
     Route: 048
     Dates: start: 2004, end: 2009
  16. RITUXIMAB. [Suspect]
     Active Substance: RITUXIMAB
     Route: 048
     Dates: start: 2004, end: 2009

REACTIONS (2)
  - Cerebral aspergillosis [Fatal]
  - Disease progression [Fatal]
